FAERS Safety Report 23139546 (Version 4)
Quarter: 2024Q4

REPORT INFORMATION
  Report Type: Spontaneous
  Country: CA (occurrence: CA)
  Receive Date: 20231102
  Receipt Date: 20241202
  Transmission Date: 20250115
  Serious: Yes (Death, Life-Threatening, Hospitalization, Disabling, Congenital Anomaly, Other)
  Sender: SANDOZ
  Company Number: CA-002147023-NVSC2021CA035974

PATIENT
  Age: 44 Year
  Sex: Female
  Weight: 30 kg

DRUGS (144)
  1. ACETAMINOPHEN [Suspect]
     Active Substance: ACETAMINOPHEN
     Indication: Product used for unknown indication
     Route: 065
  2. ADALIMUMAB [Suspect]
     Active Substance: ADALIMUMAB
     Indication: Rheumatoid arthritis
     Dosage: 40 MG
     Route: 058
  3. ALENDRONATE SODIUM [Suspect]
     Active Substance: ALENDRONATE SODIUM
     Indication: Product used for unknown indication
     Dosage: UNK
     Route: 016
  4. ALENDRONATE SODIUM [Suspect]
     Active Substance: ALENDRONATE SODIUM
     Dosage: UNK
     Route: 065
  5. APREMILAST [Suspect]
     Active Substance: APREMILAST
     Indication: Product used for unknown indication
     Dosage: 3 MG, 1 EVERY 5 DAYS
     Route: 065
  6. ATOMOXETINE HYDROCHLORIDE [Suspect]
     Active Substance: ATOMOXETINE HYDROCHLORIDE
     Indication: Migraine
     Dosage: 1 DF
     Route: 065
  7. ACTEMRA [Suspect]
     Active Substance: TOCILIZUMAB
     Dosage: 2912.0 MG
     Route: 042
  8. ACTEMRA [Suspect]
     Active Substance: TOCILIZUMAB
     Dosage: 2912.0 MG
     Route: 042
  9. ACTEMRA [Suspect]
     Active Substance: TOCILIZUMAB
     Dosage: 2912.0 MG
     Route: 042
  10. ACTEMRA [Suspect]
     Active Substance: TOCILIZUMAB
     Dosage: 2912.0 MG
     Route: 042
  11. ACTEMRA [Suspect]
     Active Substance: TOCILIZUMAB
     Dosage: 3011.2 MG
     Route: 042
  12. ACTEMRA [Suspect]
     Active Substance: TOCILIZUMAB
     Dosage: 2912.0 MG
     Route: 042
  13. ACTEMRA [Suspect]
     Active Substance: TOCILIZUMAB
     Dosage: 758.2 MG
     Route: 042
  14. ACTEMRA [Suspect]
     Active Substance: TOCILIZUMAB
     Dosage: 758.2 MG
     Route: 042
  15. ACTEMRA [Suspect]
     Active Substance: TOCILIZUMAB
     Indication: Rheumatoid arthritis
     Route: 065
  16. AIMOVIG [Suspect]
     Active Substance: ERENUMAB-AOOE
     Indication: Migraine
     Route: 065
  17. ALENDRONIC ACID [Suspect]
     Active Substance: ALENDRONIC ACID
     Indication: Product used for unknown indication
     Route: 065
  18. ARAVA [Suspect]
     Active Substance: LEFLUNOMIDE
     Indication: Rheumatoid arthritis
     Dosage: 20 MG
     Route: 048
  19. BERINERT [Suspect]
     Active Substance: HUMAN C1-ESTERASE INHIBITOR
     Indication: Product used for unknown indication
     Route: 065
  20. BOTULINUM TOXIN TYPE A [Suspect]
     Active Substance: BOTULINUM TOXIN TYPE A
     Indication: Product used for unknown indication
     Dosage: UNK
     Route: 065
  21. CANDESARTAN [Suspect]
     Active Substance: CANDESARTAN
     Indication: Migraine
     Route: 065
  22. CALCIUM ASCORBATE [Suspect]
     Active Substance: CALCIUM ASCORBATE
     Indication: Product used for unknown indication
     Route: 065
  23. CALCIUM CARBONATE [Suspect]
     Active Substance: CALCIUM CARBONATE
     Indication: Product used for unknown indication
     Route: 065
  24. CERTOLIZUMAB PEGOL [Suspect]
     Active Substance: CERTOLIZUMAB PEGOL
     Indication: Psoriasis
     Route: 065
  25. CETIRIZINE HYDROCHLORIDE [Suspect]
     Active Substance: CETIRIZINE HYDROCHLORIDE
     Indication: Product used for unknown indication
     Dosage: 25 MG
     Route: 065
  26. CHLORHEXIDINE GLUCONATE [Suspect]
     Active Substance: CHLORHEXIDINE GLUCONATE
     Indication: Product used for unknown indication
     Route: 065
  27. CHLORHEXIDINE GLUCONATE [Suspect]
     Active Substance: CHLORHEXIDINE GLUCONATE
     Route: 065
  28. CHOLECALCIFEROL [Suspect]
     Active Substance: CHOLECALCIFEROL
     Indication: Product used for unknown indication
     Route: 065
  29. CHOLECALCIFEROL [Suspect]
     Active Substance: CHOLECALCIFEROL
     Route: 065
  30. CIMZIA [Suspect]
     Active Substance: CERTOLIZUMAB PEGOL
     Dosage: 1 DF
     Route: 058
  31. CIMZIA [Suspect]
     Active Substance: CERTOLIZUMAB PEGOL
     Indication: Rheumatoid arthritis
     Dosage: 2 DF
     Route: 058
  32. CIMZIA [Suspect]
     Active Substance: CERTOLIZUMAB PEGOL
     Dosage: 400 MG
     Route: 058
  33. CODEINE SULFATE [Suspect]
     Active Substance: CODEINE SULFATE
     Indication: Product used for unknown indication
     Route: 065
  34. CORTISONE ACETATE [Suspect]
     Active Substance: CORTISONE ACETATE
     Indication: Rheumatoid arthritis
     Dosage: 25 MG
     Route: 065
  35. COSENTYX [Suspect]
     Active Substance: SECUKINUMAB
     Indication: Psoriatic arthropathy
     Dosage: UNK
     Route: 058
  36. COSENTYX [Suspect]
     Active Substance: SECUKINUMAB
     Indication: Rheumatoid arthritis
     Dosage: UNK
     Route: 065
  37. COSENTYX [Suspect]
     Active Substance: SECUKINUMAB
     Dosage: UNK
     Route: 065
  38. COSENTYX [Suspect]
     Active Substance: SECUKINUMAB
     Dosage: UNK
     Route: 065
  39. DICLOFENAC POTASSIUM [Suspect]
     Active Substance: DICLOFENAC POTASSIUM
     Indication: Product used for unknown indication
     Route: 065
  40. DICLOFENAC SODIUM [Suspect]
     Active Substance: DICLOFENAC SODIUM
     Indication: Product used for unknown indication
     Dosage: 50 MG
     Route: 065
  41. DESOXIMETASONE [Suspect]
     Active Substance: DESOXIMETASONE
     Indication: Rheumatoid arthritis
     Dosage: 25 MG
     Route: 048
  42. DICLOFENAC DIETHYLAMINE [Suspect]
     Active Substance: DICLOFENAC DIETHYLAMINE
     Indication: Product used for unknown indication
     Route: 065
  43. DOMPERIDONE MALEATE [Suspect]
     Active Substance: DOMPERIDONE MALEATE
     Indication: Product used for unknown indication
     Route: 065
  44. ERELZI [Suspect]
     Active Substance: ETANERCEPT-SZZS
     Indication: Rheumatoid arthritis
     Dosage: 50 MG
     Route: 058
  45. ERELZI [Suspect]
     Active Substance: ETANERCEPT-SZZS
     Dosage: UNK
     Route: 065
  46. ERGOCALCIFEROL [Suspect]
     Active Substance: ERGOCALCIFEROL
     Indication: Product used for unknown indication
     Route: 065
  47. ENBREL [Suspect]
     Active Substance: ETANERCEPT
     Indication: Rheumatoid arthritis
     Dosage: 50 MG
     Route: 065
  48. FOLIC ACID [Suspect]
     Active Substance: FOLIC ACID
     Indication: Rheumatoid arthritis
     Dosage: 1 MG
     Route: 065
  49. FOLIC ACID [Suspect]
     Active Substance: FOLIC ACID
     Dosage: 15 MG
     Route: 065
  50. FOLIC ACID [Suspect]
     Active Substance: FOLIC ACID
     Dosage: 5 MG
     Route: 065
  51. FOLIC ACID [Suspect]
     Active Substance: FOLIC ACID
     Dosage: 500 MG
     Route: 065
  52. FOLIC ACID [Suspect]
     Active Substance: FOLIC ACID
     Dosage: UNK
     Route: 065
  53. FLUMETHASONE PIVALATE [Suspect]
     Active Substance: FLUMETHASONE PIVALATE
     Indication: Product used for unknown indication
     Route: 065
  54. FOSAMAX [Suspect]
     Active Substance: ALENDRONATE SODIUM
     Indication: Rheumatoid arthritis
     Route: 065
  55. GOLD [Suspect]
     Active Substance: GOLD
     Indication: Product used for unknown indication
     Route: 065
  56. GOLD SODIUM THIOMALATE [Suspect]
     Active Substance: GOLD SODIUM THIOMALATE
     Indication: Product used for unknown indication
     Route: 065
  57. HYDROCORTISONE [Suspect]
     Active Substance: HYDROCORTISONE
     Dosage: UNK
     Route: 058
  58. HYDROCORTISONE [Suspect]
     Active Substance: HYDROCORTISONE
     Indication: Rheumatoid arthritis
     Dosage: UNK
     Route: 065
  59. HUMIRA [Suspect]
     Active Substance: ADALIMUMAB
     Indication: Rheumatoid arthritis
     Dosage: SOLUTION SUBCUTANEOUS
     Route: 058
  60. HYDROCORTISONE ACETATE [Suspect]
     Active Substance: HYDROCORTISONE ACETATE
     Indication: Product used for unknown indication
     Route: 065
  61. HYDROXYCHLOROQUINE SULFATE [Suspect]
     Active Substance: HYDROXYCHLOROQUINE SULFATE
     Dosage: 40 MG, QD
     Route: 065
  62. HYDROXYCHLOROQUINE SULFATE [Suspect]
     Active Substance: HYDROXYCHLOROQUINE SULFATE
     Indication: Rheumatoid arthritis
     Dosage: UNK
     Route: 048
  63. HYDROXYCHLOROQUINE SULFATE [Suspect]
     Active Substance: HYDROXYCHLOROQUINE SULFATE
     Route: 065
  64. HYDROXYCHLOROQUINE SULFATE [Suspect]
     Active Substance: HYDROXYCHLOROQUINE SULFATE
     Route: 065
  65. INFLIXIMAB [Suspect]
     Active Substance: INFLIXIMAB
     Indication: Rheumatoid arthritis
     Dosage: 300 MG
     Route: 042
  66. IBUPROFEN [Suspect]
     Active Substance: IBUPROFEN
     Indication: Product used for unknown indication
     Route: 065
  67. IBUPROFEN [Suspect]
     Active Substance: IBUPROFEN
     Indication: Product used for unknown indication
     Route: 065
  68. ISOPROPYL ALCOHOL [Suspect]
     Active Substance: ISOPROPYL ALCOHOL
     Indication: Product used for unknown indication
     Route: 065
  69. LEFLUNOMIDE [Suspect]
     Active Substance: LEFLUNOMIDE
     Indication: Rheumatoid arthritis
     Dosage: UNK
     Route: 003
  70. LEFLUNOMIDE [Suspect]
     Active Substance: LEFLUNOMIDE
     Dosage: UNK
     Route: 065
  71. LAMICTAL [Suspect]
     Active Substance: LAMOTRIGINE
     Indication: Product used for unknown indication
     Dosage: 25 MG
     Route: 048
  72. METHOTREXATE SODIUM [Suspect]
     Active Substance: METHOTREXATE SODIUM
     Indication: Rheumatoid arthritis
     Dosage: UNK
     Route: 016
  73. MAGNESIUM CITRATE [Suspect]
     Active Substance: MAGNESIUM CITRATE
     Indication: Product used for unknown indication
     Route: 065
  74. MEGLUMINE [Suspect]
     Active Substance: MEGLUMINE
     Indication: Migraine
     Route: 065
  75. METHOTREXATE [Suspect]
     Active Substance: METHOTREXATE
     Indication: Rheumatoid arthritis
     Dosage: 25 MG
     Route: 013
  76. METHOTREXATE [Suspect]
     Active Substance: METHOTREXATE
     Dosage: 1 G, 1 EVERY .5 DAY
     Route: 048
  77. METHOTREXATE [Suspect]
     Active Substance: METHOTREXATE
     Dosage: 1 MG
     Route: 048
  78. METHOTREXATE [Suspect]
     Active Substance: METHOTREXATE
     Dosage: 15 MG, QD
     Route: 048
  79. METHOTREXATE [Suspect]
     Active Substance: METHOTREXATE
     Dosage: 2 G
     Route: 048
  80. METHOTREXATE [Suspect]
     Active Substance: METHOTREXATE
     Dosage: 20 MG
     Route: 048
  81. METHOTREXATE [Suspect]
     Active Substance: METHOTREXATE
     Dosage: 20 MG
     Route: 048
  82. METHOTREXATE [Suspect]
     Active Substance: METHOTREXATE
     Dosage: 225 MG
     Route: 048
  83. METHOTREXATE [Suspect]
     Active Substance: METHOTREXATE
     Dosage: 1 G, 1 EVERY .5 DAY
     Route: 048
  84. METHOTREXATE [Suspect]
     Active Substance: METHOTREXATE
     Indication: Rheumatoid arthritis
     Dosage: 25 MG
     Route: 048
  85. METHOTREXATE [Suspect]
     Active Substance: METHOTREXATE
     Dosage: 25 MG
     Route: 048
  86. METHOTREXATE [Suspect]
     Active Substance: METHOTREXATE
     Dosage: 25 MG
     Route: 048
  87. METHOTREXATE [Suspect]
     Active Substance: METHOTREXATE
     Dosage: 25 MG
     Route: 048
  88. METHOTREXATE [Suspect]
     Active Substance: METHOTREXATE
     Dosage: 25 MG
     Route: 048
  89. METHOTREXATE [Suspect]
     Active Substance: METHOTREXATE
     Dosage: 40 MG
     Route: 048
  90. METHYLPREDNISOLONE SODIUM SUCCINATE [Suspect]
     Active Substance: METHYLPREDNISOLONE SODIUM SUCCINATE
     Indication: Product used for unknown indication
     Route: 065
  91. MYRBETRIQ [Suspect]
     Active Substance: MIRABEGRON
     Indication: Product used for unknown indication
     Dosage: 1 DF, QD
     Route: 065
  92. NAPROXEN [Suspect]
     Active Substance: NAPROXEN
     Indication: Product used for unknown indication
     Dosage: 500 MG, 1 EVERY .5 DAYS
     Route: 065
  93. NAPROXEN SODIUM [Suspect]
     Active Substance: NAPROXEN SODIUM
     Indication: Rheumatoid arthritis
     Dosage: 500 MG
     Route: 065
  94. NUCALA [Suspect]
     Active Substance: MEPOLIZUMAB
     Indication: Product used for unknown indication
     Route: 065
  95. OXYCODONE HYDROCHLORIDE [Suspect]
     Active Substance: OXYCODONE HYDROCHLORIDE
     Indication: Product used for unknown indication
     Route: 065
  96. ORENCIA [Suspect]
     Active Substance: ABATACEPT
     Dosage: UNK
     Route: 065
  97. ORENCIA [Suspect]
     Active Substance: ABATACEPT
     Indication: Rheumatoid arthritis
     Route: 042
  98. OXYCODONE TEREPHTHALATE [Suspect]
     Active Substance: OXYCODONE TEREPHTHALATE
     Indication: Product used for unknown indication
     Route: 065
  99. PHENYLEPHRINE HYDROCHLORIDE [Suspect]
     Active Substance: PHENYLEPHRINE HYDROCHLORIDE
     Indication: Product used for unknown indication
     Dosage: 10 MG
     Route: 065
  100. PHTHALYLSULFATHIAZOLE [Suspect]
     Active Substance: PHTHALYLSULFATHIAZOLE
     Indication: Rheumatoid arthritis
     Dosage: 1000 MG
     Route: 065
  101. PHTHALYLSULFATHIAZOLE [Suspect]
     Active Substance: PHTHALYLSULFATHIAZOLE
     Dosage: 500 MG
     Route: 065
  102. PREDNISONE [Suspect]
     Active Substance: PREDNISONE
     Indication: Rheumatoid arthritis
     Dosage: 5 MG
     Route: 065
  103. PSEUDOEPHEDRINE HYDROCHLORIDE [Suspect]
     Active Substance: PSEUDOEPHEDRINE HYDROCHLORIDE
     Indication: Product used for unknown indication
     Dosage: 1 MG
     Route: 065
  104. RITUXIMAB [Suspect]
     Active Substance: RITUXIMAB
     Dosage: 365 MG
     Route: 065
  105. RITUXIMAB [Suspect]
     Active Substance: RITUXIMAB
     Dosage: UNK
     Route: 016
  106. RITUXIMAB [Suspect]
     Active Substance: RITUXIMAB
     Indication: Rheumatoid arthritis
     Dosage: UNK
     Route: 042
  107. RITUXIMAB [Suspect]
     Active Substance: RITUXIMAB
     Dosage: UNK
     Route: 042
  108. RITUXIMAB [Suspect]
     Active Substance: RITUXIMAB
     Dosage: UNK
     Route: 042
  109. RITUXIMAB [Suspect]
     Active Substance: RITUXIMAB
     Dosage: UNK
     Route: 058
  110. RITUXIMAB [Suspect]
     Active Substance: RITUXIMAB
     Dosage: UNK
     Route: 065
  111. RAMIPRIL [Suspect]
     Active Substance: RAMIPRIL
     Indication: Product used for unknown indication
     Route: 065
  112. RANITIDINE HYDROCHLORIDE [Suspect]
     Active Substance: RANITIDINE HYDROCHLORIDE
     Indication: Product used for unknown indication
     Route: 065
  113. REMICADE [Suspect]
     Active Substance: INFLIXIMAB
     Indication: Rheumatoid arthritis
     Dosage: POWDER FOR SOLUTION INTRAVENOUS
     Route: 042
  114. DIETARY SUPPLEMENT\HERBALS [Suspect]
     Active Substance: DIETARY SUPPLEMENT\HERBALS
     Indication: Product used for unknown indication
     Route: 048
  115. FISH OIL [Suspect]
     Active Substance: FISH OIL
     Indication: Product used for unknown indication
     Route: 065
  116. SECUKINUMAB [Suspect]
     Active Substance: SECUKINUMAB
     Indication: Psoriatic arthropathy
     Dosage: UNK
     Route: 042
  117. SECUKINUMAB [Suspect]
     Active Substance: SECUKINUMAB
     Dosage: UNK
     Route: 042
  118. SIMPONI [Suspect]
     Active Substance: GOLIMUMAB
     Indication: Rheumatoid arthritis
     Dosage: 50 MG
     Route: 058
  119. SIMPONI [Suspect]
     Active Substance: GOLIMUMAB
     Indication: Prostatic specific antigen
     Dosage: UNK
     Route: 065
  120. GOLD SODIUM THIOMALATE [Suspect]
     Active Substance: GOLD SODIUM THIOMALATE
     Indication: Product used for unknown indication
     Route: 065
  121. SULFASALAZINE [Suspect]
     Active Substance: SULFASALAZINE
     Indication: Rheumatoid arthritis
     Dosage: 1 G
     Route: 065
  122. SULFASALAZINE [Suspect]
     Active Substance: SULFASALAZINE
     Dosage: 300 MG, QD
     Route: 065
  123. SULFASALAZINE [Suspect]
     Active Substance: SULFASALAZINE
     Dosage: 500 MG
     Route: 065
  124. TOFACITINIB [Suspect]
     Active Substance: TOFACITINIB
     Dosage: 5 MG,
     Route: 065
  125. TOFACITINIB [Suspect]
     Active Substance: TOFACITINIB
     Dosage: 5 MG, QD
     Route: 065
  126. TOFACITINIB [Suspect]
     Active Substance: TOFACITINIB
     Indication: Product used for unknown indication
     Dosage: 5 MG, 1 EVERY .5 DAYS
     Route: 065
  127. TOPIRAMATE [Suspect]
     Active Substance: TOPIRAMATE
     Indication: Migraine
     Dosage: 3 MG, QD
     Route: 065
  128. TRIAMCINOLONE ACETONIDE [Suspect]
     Active Substance: TRIAMCINOLONE ACETONIDE
     Indication: Rheumatoid arthritis
     Dosage: UNK
     Route: 013
  129. USTEKINUMAB [Suspect]
     Active Substance: USTEKINUMAB
     Indication: Product used for unknown indication
     Route: 058
  130. FOLIC ACID [Suspect]
     Active Substance: FOLIC ACID
     Indication: Product used for unknown indication
     Route: 065
  131. FOLIC ACID [Suspect]
     Active Substance: FOLIC ACID
     Indication: Product used for unknown indication
     Route: 065
  132. ATIVAN [Concomitant]
     Active Substance: LORAZEPAM
     Indication: Product used for unknown indication
     Route: 065
  133. ATIVAN [Concomitant]
     Active Substance: LORAZEPAM
     Indication: Product used for unknown indication
     Route: 065
  134. CALCIUM [Concomitant]
     Active Substance: CALCIUM
     Indication: Product used for unknown indication
     Route: 065
  135. CYANOCOBALAMIN [Concomitant]
     Active Substance: CYANOCOBALAMIN
     Indication: Product used for unknown indication
     Route: 065
  136. GLUCOSAMINE [Concomitant]
     Active Substance: GLUCOSAMINE
     Indication: Product used for unknown indication
     Route: 065
  137. LANSOPRAZOLE [Concomitant]
     Active Substance: LANSOPRAZOLE
     Indication: Product used for unknown indication
     Route: 065
  138. LISINOPRIL [Concomitant]
     Active Substance: LISINOPRIL
     Indication: Product used for unknown indication
     Route: 065
  139. PANTOPRAZOLE SODIUM [Concomitant]
     Active Substance: PANTOPRAZOLE SODIUM
     Indication: Product used for unknown indication
     Route: 065
  140. PREDNISOLONE [Concomitant]
     Active Substance: PREDNISOLONE
     Indication: Product used for unknown indication
     Route: 065
  141. QUETIAPINE FUMARATE [Concomitant]
     Active Substance: QUETIAPINE FUMARATE
     Indication: Product used for unknown indication
     Route: 065
  142. RISEDRONATE SODIUM [Concomitant]
     Active Substance: RISEDRONATE SODIUM
     Indication: Product used for unknown indication
     Route: 065
  143. SULFASALAZINE [Concomitant]
     Active Substance: SULFASALAZINE
     Indication: Product used for unknown indication
     Route: 065
  144. XELJANZ [Concomitant]
     Active Substance: TOFACITINIB CITRATE
     Indication: Product used for unknown indication
     Route: 065

REACTIONS (65)
  - Discomfort [Fatal]
  - Wound [Fatal]
  - Wound infection [Fatal]
  - X-ray abnormal [Fatal]
  - Intentional product use issue [Fatal]
  - Medication error [Fatal]
  - Prescribed overdose [Fatal]
  - Contraindicated product administered [Fatal]
  - Product use in unapproved indication [Fatal]
  - Off label use [Fatal]
  - Drug ineffective [Fatal]
  - Abdominal discomfort [Not Recovered/Not Resolved]
  - Maternal exposure timing unspecified [Unknown]
  - Arthropathy [Not Recovered/Not Resolved]
  - Lip dry [Fatal]
  - Product use issue [Fatal]
  - Glossodynia [Fatal]
  - Product quality issue [Fatal]
  - Nail disorder [Fatal]
  - Hypercholesterolaemia [Fatal]
  - Gastrooesophageal reflux disease [Fatal]
  - Bursitis [Fatal]
  - No adverse event [Fatal]
  - C-reactive protein increased [Fatal]
  - Abdominal pain [Fatal]
  - Epilepsy [Fatal]
  - Blepharospasm [Fatal]
  - Taste disorder [Fatal]
  - Nasopharyngitis [Fatal]
  - Pemphigus [Fatal]
  - Maternal exposure during pregnancy [Unknown]
  - Live birth [Not Recovered/Not Resolved]
  - Lower respiratory tract infection [Not Recovered/Not Resolved]
  - Mobility decreased [Not Recovered/Not Resolved]
  - Nausea [Not Recovered/Not Resolved]
  - Oedema [Not Recovered/Not Resolved]
  - Pancreatitis [Not Recovered/Not Resolved]
  - Peripheral swelling [Not Recovered/Not Resolved]
  - Porphyria acute [Not Recovered/Not Resolved]
  - Rectal haemorrhage [Not Recovered/Not Resolved]
  - Sinusitis [Not Recovered/Not Resolved]
  - Therapy non-responder [Not Recovered/Not Resolved]
  - Underdose [Not Recovered/Not Resolved]
  - Vomiting [Not Recovered/Not Resolved]
  - Wheezing [Not Recovered/Not Resolved]
  - White blood cell count increased [Not Recovered/Not Resolved]
  - Dizziness [Not Recovered/Not Resolved]
  - Pruritus [Not Recovered/Not Resolved]
  - Duodenal ulcer perforation [Not Recovered/Not Resolved]
  - Rheumatoid factor positive [Not Recovered/Not Resolved]
  - Musculoskeletal stiffness [Not Recovered/Not Resolved]
  - Hypersensitivity [Not Recovered/Not Resolved]
  - Hepatic enzyme increased [Not Recovered/Not Resolved]
  - Synovitis [Not Recovered/Not Resolved]
  - Arthralgia [Not Recovered/Not Resolved]
  - Adverse drug reaction [Not Recovered/Not Resolved]
  - Rash [Not Recovered/Not Resolved]
  - Joint swelling [Not Recovered/Not Resolved]
  - Therapeutic product effect decreased [Not Recovered/Not Resolved]
  - Treatment failure [Not Recovered/Not Resolved]
  - Rheumatoid arthritis [Not Recovered/Not Resolved]
  - Alopecia [Not Recovered/Not Resolved]
  - Fatigue [Not Recovered/Not Resolved]
  - Hand deformity [Not Recovered/Not Resolved]
  - Systemic lupus erythematosus [Not Recovered/Not Resolved]
